FAERS Safety Report 14329382 (Version 2)
Quarter: 2018Q1

REPORT INFORMATION
  Report Type: Report from Study
  Country: FR (occurrence: FR)
  Receive Date: 20171227
  Receipt Date: 20180102
  Transmission Date: 20180509
  Serious: Yes (Hospitalization)
  Sender: FDA-Public Use
  Company Number: FR-PFIZER INC-2017541715

PATIENT
  Age: 54 Year
  Sex: Male
  Weight: 65 kg

DRUGS (27)
  1. MYFORTIC [Suspect]
     Active Substance: MYCOPHENOLATE SODIUM
     Indication: IMMUNOSUPPRESSANT DRUG THERAPY
     Dosage: 1440 MG, 1X/DAY
     Route: 065
     Dates: start: 20150409, end: 20150603
  2. CERTICAN [Suspect]
     Active Substance: EVEROLIMUS
     Indication: LIVER TRANSPLANT
     Dosage: 4 MG, 1X/DAY
     Route: 048
     Dates: start: 20150327, end: 20161125
  3. CORTANCYL [Concomitant]
     Active Substance: PREDNISONE
     Dosage: 10 MG, 1X/DAY
     Route: 065
     Dates: start: 20150416, end: 20150814
  4. PRAVASTATIN. [Concomitant]
     Active Substance: PRAVASTATIN
     Indication: DYSLIPIDAEMIA
     Dosage: 10 MG, 1X/DAY
     Route: 065
     Dates: start: 20161125
  5. MYFORTIC [Suspect]
     Active Substance: MYCOPHENOLATE SODIUM
     Indication: LIVER TRANSPLANT
     Dosage: 720 MG, 1X/DAY
     Route: 065
     Dates: start: 20150327, end: 20150408
  6. CERTICAN [Suspect]
     Active Substance: EVEROLIMUS
     Dosage: 3 MG, 2X/DAY
     Route: 048
     Dates: start: 20141030
  7. METFORMIN [Concomitant]
     Active Substance: METFORMIN HYDROCHLORIDE
     Indication: DIABETES MELLITUS
     Dosage: 850 MG, 1X/DAY
     Route: 065
     Dates: start: 20160729, end: 20170828
  8. CORTANCYL [Concomitant]
     Active Substance: PREDNISONE
     Dosage: 7.5 MG, 1X/DAY
     Route: 065
     Dates: start: 20150815, end: 20151127
  9. CORTANCYL [Concomitant]
     Active Substance: PREDNISONE
     Dosage: 5 MG, 1X/DAY
     Route: 065
     Dates: start: 20151128, end: 20160325
  10. ASPEGIC [Concomitant]
     Active Substance: ASPIRIN DL-LYSINE
     Dosage: 160 MG, 1X/DAY
     Route: 065
     Dates: start: 20150416
  11. TAHOR [Suspect]
     Active Substance: ATORVASTATIN CALCIUM
     Dosage: UNK
     Route: 065
  12. CORTANCYL [Concomitant]
     Active Substance: PREDNISONE
     Indication: IMMUNOSUPPRESSANT DRUG THERAPY
     Dosage: 5 MG, 1X/DAY
     Route: 065
     Dates: start: 20161126
  13. CORTANCYL [Concomitant]
     Active Substance: PREDNISONE
     Dosage: 5 MG, 1X/DAY
     Route: 065
     Dates: start: 20150327, end: 20150415
  14. CORTANCYL [Concomitant]
     Active Substance: PREDNISONE
     Dosage: 10 MG, 1X/DAY
     Route: 065
     Dates: start: 20160326, end: 20160729
  15. CERTICAN [Suspect]
     Active Substance: EVEROLIMUS
     Indication: PROPHYLAXIS AGAINST TRANSPLANT REJECTION
     Dosage: 2 MG, 1X/DAY
     Route: 048
     Dates: start: 20170831
  16. CERTICAN [Suspect]
     Active Substance: EVEROLIMUS
     Indication: IMMUNOSUPPRESSANT DRUG THERAPY
     Dosage: 3 MG, 1X/DAY
     Route: 048
     Dates: start: 20161126, end: 20170830
  17. CERTICAN [Suspect]
     Active Substance: EVEROLIMUS
     Dosage: 1.5 MG, 2X/DAY
     Route: 048
     Dates: start: 20141030
  18. CORTANCYL [Concomitant]
     Active Substance: PREDNISONE
     Dosage: 7.5 MG, 1X/DAY
     Route: 065
     Dates: start: 20160730, end: 20161125
  19. CORTANCYL [Concomitant]
     Active Substance: PREDNISONE
     Dosage: 5 MG, 1X/DAY
     Route: 048
     Dates: start: 20141003
  20. ADVAGRAF [Concomitant]
     Active Substance: TACROLIMUS
     Dosage: 3 MG, 1X/DAY
     Route: 065
     Dates: start: 20151128, end: 20170825
  21. ADVAGRAF [Concomitant]
     Active Substance: TACROLIMUS
     Dosage: 3 MG, 1X/DAY
     Route: 065
     Dates: start: 20150416
  22. ADVAGRAF [Concomitant]
     Active Substance: TACROLIMUS
     Dosage: 4 MG, 1X/DAY
     Route: 065
     Dates: start: 20150604, end: 20151127
  23. VALSARTAN. [Concomitant]
     Active Substance: VALSARTAN
     Indication: HYPERTENSION
     Dosage: 40 MG, 1X/DAY
     Route: 065
     Dates: start: 20161117
  24. ADVAGRAF [Concomitant]
     Active Substance: TACROLIMUS
     Indication: IMMUNOSUPPRESSANT DRUG THERAPY
     Dosage: 2 MG, 1X/DAY
     Route: 065
     Dates: start: 20170829
  25. PROGRAF [Concomitant]
     Active Substance: TACROLIMUS\TACROLIMUS ANHYDROUS
     Indication: IMMUNOSUPPRESSANT DRUG THERAPY
     Dosage: 4 MG, 1X/DAY
     Route: 065
     Dates: start: 20150416, end: 20150603
  26. LODOZ [Concomitant]
     Active Substance: BISOPROLOL FUMARATE\HYDROCHLOROTHIAZIDE
     Indication: HYPERTENSION
     Dosage: 2.5 MG, 1X/DAY
     Route: 065
     Dates: start: 20160517
  27. ADVAGRAF [Concomitant]
     Active Substance: TACROLIMUS
     Dosage: 1 MG, 1X/DAY
     Route: 065
     Dates: start: 20170826

REACTIONS (4)
  - Muscle spasms [Recovered/Resolved]
  - Renal failure [Recovering/Resolving]
  - Diarrhoea [Recovering/Resolving]
  - Renal tubular necrosis [Recovering/Resolving]

NARRATIVE: CASE EVENT DATE: 2017
